FAERS Safety Report 6993659-6 (Version None)
Quarter: 2010Q3

REPORT INFORMATION
  Report Type: 
  Country: None (occurrence: None)
  Receive Date: 20100917
  Receipt Date: 20080606
  Transmission Date: 20110219
  Serious: Yes (Other)
  Sender: FDA-Public Use
  Company Number: US-ASTRAZENECA-2007UW12058

PATIENT
  Age: 18118 Day
  Sex: Male
  Weight: 94.3 kg

DRUGS (6)
  1. SEROQUEL [Suspect]
     Indication: INSOMNIA
     Route: 048
     Dates: start: 20030101, end: 20050701
  2. GLUCOTROL XL [Concomitant]
     Dosage: 10-15 MG DAILY
     Route: 048
     Dates: start: 20030108
  3. ZOLOFT [Concomitant]
     Dosage: 100 MG 2 QD,200 MG Q BEDTIME
     Route: 048
     Dates: start: 20030108
  4. PROTONIX [Concomitant]
     Route: 048
     Dates: start: 20030108
  5. CALCIUM [Concomitant]
     Route: 048
     Dates: start: 20030108
  6. SYNTHROID [Concomitant]
     Dates: start: 20030108

REACTIONS (3)
  - DIABETES MELLITUS [None]
  - ERECTILE DYSFUNCTION [None]
  - TYPE 2 DIABETES MELLITUS [None]
